FAERS Safety Report 17646425 (Version 1)
Quarter: 2020Q2

REPORT INFORMATION
  Report Type: Spontaneous
  Country: CA (occurrence: CA)
  Receive Date: 20200408
  Receipt Date: 20200408
  Transmission Date: 20200713
  Serious: Yes (Other)
  Sender: FDA-Public Use
  Company Number: CA-PFIZER INC-2020144089

PATIENT
  Age: 65 Year
  Sex: Male

DRUGS (3)
  1. ARAVA [Concomitant]
     Active Substance: LEFLUNOMIDE
     Dosage: UNK
  2. CELECOXIB. [Concomitant]
     Active Substance: CELECOXIB
     Indication: RHEUMATOID ARTHRITIS
     Dosage: 200 MG, DAILY
     Route: 048
  3. XELJANZ [Suspect]
     Active Substance: TOFACITINIB CITRATE
     Indication: RHEUMATOID ARTHRITIS
     Dosage: 5 MG, 2X/DAY
     Route: 048
     Dates: start: 20160613, end: 202001

REACTIONS (1)
  - Hepatic cirrhosis [Unknown]
